FAERS Safety Report 9312049 (Version 1)
Quarter: 2013Q1

REPORT INFORMATION
  Report Type: Spontaneous
  Country: US (occurrence: None)
  Receive Date: 20130102
  Receipt Date: 20130102
  Transmission Date: 20140127
  Serious: Yes (Other)
  Sender: FDA-Public Use
  Company Number: ACO_32335-2012

PATIENT
  Age: 49 Year
  Sex: Male
  Weight: 87.5 kg

DRUGS (4)
  1. AMPYRA (DALFAMPRIDINE) TABLET, 10MG [Suspect]
     Indication: GAIT DISTURBANCE
     Route: 048
     Dates: start: 2012, end: 201205
  2. COPAXONE (GLATIRAMER ACETATE) [Concomitant]
  3. SUBOXONE  (BUPRENORPHINE HYDROCHLORIDE, HYDROCHLORIDE)NALOXONE [Concomitant]
  4. LIPITOR (ATORVASTATIN CALCIUM) [Concomitant]

REACTIONS (7)
  - Parkinson^s disease [None]
  - Breast pain [None]
  - Blood testosterone decreased [None]
  - Tooth fracture [None]
  - Convulsion [None]
  - Nipple pain [None]
  - Drug ineffective [None]
